FAERS Safety Report 9411979 (Version 2)
Quarter: 2013Q2

REPORT INFORMATION
  Report Type: Spontaneous
  Country: US (occurrence: None)
  Receive Date: 20130424
  Receipt Date: 20130603
  Transmission Date: 20140414
  Serious: Yes (Hospitalization)
  Sender: FDA-Public Use
  Company Number: SYM-2013-02856

PATIENT
  Age: 38 Year
  Sex: Male

DRUGS (3)
  1. LORAZEPAM (LORAZEPAM) (LORAZEPAM) [Suspect]
     Indication: ANXIETY
     Dosage: 2 MG AS REQUIRED ORAL
     Route: 048
     Dates: start: 200908
  2. TOFACITINIB [Suspect]
     Indication: PSORIASIS
     Route: 048
     Dates: start: 20120220
  3. CYMBALTA [Suspect]
     Indication: DEPRESSION
     Route: 048
     Dates: start: 20120716

REACTIONS (5)
  - Renal failure [None]
  - Blood cholesterol increased [None]
  - Blood lactate dehydrogenase increased [None]
  - Blood triglycerides increased [None]
  - Low density lipoprotein increased [None]
